FAERS Safety Report 14471199 (Version 1)
Quarter: 2018Q1

REPORT INFORMATION
  Report Type: Spontaneous
  Country: US (occurrence: US)
  Receive Date: 20180130
  Receipt Date: 20180130
  Transmission Date: 20180509
  Serious: Yes (Disabling)
  Sender: FDA-Public Use
  Company Number: None

PATIENT
  Age: 84 Year
  Sex: Male
  Weight: 67.5 kg

DRUGS (7)
  1. ASPIRIN. [Concomitant]
     Active Substance: ASPIRIN
  2. XALATAN [Suspect]
     Active Substance: LATANOPROST
     Indication: GLAUCOMA
     Dosage: ?          QUANTITY:1 DROP(S);?
     Route: 047
  3. CARVIDILOL [Concomitant]
  4. METFORMIN [Concomitant]
     Active Substance: METFORMIN HYDROCHLORIDE
  5. GLUCOSAMINE CONDROITIN [Concomitant]
  6. LASIX [Concomitant]
     Active Substance: FUROSEMIDE
  7. CINTRUM SILVER [Concomitant]

REACTIONS (2)
  - Product container issue [None]
  - Incorrect dose administered [None]

NARRATIVE: CASE EVENT DATE: 20180129
